FAERS Safety Report 21926629 (Version 1)
Quarter: 2023Q1

REPORT INFORMATION
  Report Type: Spontaneous
  Country: US (occurrence: None)
  Receive Date: 20230127
  Receipt Date: 20230127
  Transmission Date: 20230418
  Serious: Yes (unspecified)
  Sender: FDA-Public Use
  Company Number: None

PATIENT
  Age: 58 Year
  Sex: Female
  Weight: 78.03 kg

DRUGS (13)
  1. ZOLEDRONIC ACID [Suspect]
     Active Substance: ZOLEDRONIC ACID
     Indication: Bone disorder
     Dosage: FREQUENCY : ONCE;?
     Route: 040
  2. ZOLEDRONIC ACID [Suspect]
     Active Substance: ZOLEDRONIC ACID
     Indication: Metabolic surgery
  3. METOPROLOL SUCCINATE [Concomitant]
     Active Substance: METOPROLOL SUCCINATE
     Dates: start: 20080101
  4. ATORVASTATIN [Concomitant]
     Active Substance: ATORVASTATIN
     Dates: start: 20200101
  5. WELLBUTRIN [Concomitant]
     Active Substance: BUPROPION HYDROCHLORIDE
     Dates: start: 20190101
  6. OZEMPIC [Concomitant]
     Active Substance: SEMAGLUTIDE
     Dates: start: 20200101
  7. LUTINE [Concomitant]
     Dates: start: 20170101
  8. MAGNESIUM OXIDE [Concomitant]
     Active Substance: MAGNESIUM OXIDE
     Dates: start: 20090101
  9. Zyrtec as needed for seasonal allergies [Concomitant]
  10. Acetaminophen as needed for pain [Concomitant]
  11. Ibuprofen as needed for pain [Concomitant]
  12. CALCIUM CITRATE\VITAMIN D [Concomitant]
     Active Substance: CALCIUM CITRATE\VITAMIN D
     Dates: start: 20211201
  13. Bariatric multivitamin [Concomitant]
     Dates: start: 20211201

REACTIONS (18)
  - Infusion related reaction [None]
  - Diarrhoea [None]
  - Incontinence [None]
  - Abdominal discomfort [None]
  - Nausea [None]
  - Headache [None]
  - Abdominal tenderness [None]
  - Myalgia [None]
  - Decreased appetite [None]
  - Fatigue [None]
  - Peripheral swelling [None]
  - Erythema [None]
  - Palpable purpura [None]
  - Vasculitis [None]
  - Aspartate aminotransferase increased [None]
  - Alanine aminotransferase increased [None]
  - Leukocytosis [None]
  - Neutrophil count increased [None]

NARRATIVE: CASE EVENT DATE: 20220304
